FAERS Safety Report 14842898 (Version 1)
Quarter: 2018Q2

REPORT INFORMATION
  Report Type: Spontaneous
  Country: US (occurrence: US)
  Receive Date: 20180418
  Receipt Date: 20180418
  Transmission Date: 20180711
  Serious: Yes (Life-Threatening, Hospitalization, Disabling, Other)
  Sender: FDA-Public Use
  Company Number: None

PATIENT
  Age: 33 Year
  Sex: Female
  Weight: 73.03 kg

DRUGS (1)
  1. NEXPLANON [Suspect]
     Active Substance: ETONOGESTREL
     Indication: CONTRACEPTION

REACTIONS (16)
  - Pyrexia [None]
  - Chest pain [None]
  - Pelvic pain [None]
  - Ocular discomfort [None]
  - Feeling of body temperature change [None]
  - Blindness unilateral [None]
  - Blindness transient [None]
  - Screaming [None]
  - Decreased appetite [None]
  - Apparent death [None]
  - Aggression [None]
  - Anger [None]
  - Eye irritation [None]
  - Headache [None]
  - Tremor [None]
  - Hypersensitivity [None]

NARRATIVE: CASE EVENT DATE: 20171217
